FAERS Safety Report 12496990 (Version 2)
Quarter: 2016Q3

REPORT INFORMATION
  Report Type: Spontaneous
  Country: US (occurrence: US)
  Receive Date: 20160624
  Receipt Date: 20160825
  Transmission Date: 20161109
  Serious: Yes (Other)
  Sender: FDA-Public Use
  Company Number: US-TEVA-669089USA

PATIENT
  Age: 25 Year
  Sex: Female

DRUGS (10)
  1. ZECUITY [Suspect]
     Active Substance: SUMATRIPTAN SUCCINATE
     Dosage: 6.5 MG OVER 4 HOURS
     Route: 062
     Dates: start: 201601, end: 201601
  2. BOTOX [Concomitant]
     Active Substance: ONABOTULINUMTOXINA
     Dosage: EVERY 3 MONTHS
  3. MAGNESIUM [Concomitant]
     Active Substance: MAGNESIUM
  4. AMITRIPTYLINE [Concomitant]
     Active Substance: AMITRIPTYLINE
  5. CAMBIA [Concomitant]
     Active Substance: DICLOFENAC POTASSIUM
  6. MELATONIN [Concomitant]
     Active Substance: MELATONIN
  7. PROPRANOLOL [Concomitant]
     Active Substance: PROPRANOLOL\PROPRANOLOL HYDROCHLORIDE
  8. RELPAX [Concomitant]
     Active Substance: ELETRIPTAN HYDROBROMIDE
  9. BUTALBITAL [Concomitant]
     Active Substance: BUTALBITAL
  10. ZECUITY [Suspect]
     Active Substance: SUMATRIPTAN SUCCINATE
     Indication: MIGRAINE
     Dosage: 6.5 MG OVER 4 HOURS
     Route: 062
     Dates: start: 20160509, end: 20160509

REACTIONS (7)
  - Application site paraesthesia [Unknown]
  - Application site erythema [Unknown]
  - Application site discolouration [Not Recovered/Not Resolved]
  - Application site burn [Unknown]
  - Application site vesicles [Unknown]
  - Application site warmth [Unknown]
  - Dry skin [Unknown]

NARRATIVE: CASE EVENT DATE: 20160509
